FAERS Safety Report 16110533 (Version 2)
Quarter: 2019Q1

REPORT INFORMATION
  Report Type: Spontaneous
  Country: HU (occurrence: HU)
  Receive Date: 20190325
  Receipt Date: 20190328
  Transmission Date: 20190418
  Serious: Yes (Other)
  Sender: FDA-Public Use
  Company Number: HU-SUN PHARMACEUTICAL INDUSTRIES LTD-2019RR-202918

PATIENT
  Age: 21 Year
  Sex: Male

DRUGS (4)
  1. METRONIDAZOLE. [Suspect]
     Active Substance: METRONIDAZOLE
     Indication: PERITONSILLAR ABSCESS
     Dosage: UNK
     Route: 065
  2. CLARITHROMYCIN. [Suspect]
     Active Substance: CLARITHROMYCIN
     Indication: PERITONSILLAR ABSCESS
     Dosage: UNK
     Route: 065
  3. AMOXICILLIN+CLAVULANIC ACID [Suspect]
     Active Substance: AMOXICILLIN\CLAVULANIC ACID
     Indication: PERITONSILLAR ABSCESS
     Dosage: UNK
     Route: 065
  4. CLINDAMYCIN. [Suspect]
     Active Substance: CLINDAMYCIN
     Indication: PERITONSILLAR ABSCESS
     Dosage: UNK
     Route: 065

REACTIONS (9)
  - Product use in unapproved indication [Unknown]
  - Oropharyngeal pain [Recovered/Resolved]
  - Pyrexia [Recovered/Resolved]
  - Cytomegalovirus infection [Recovered/Resolved]
  - Liver function test increased [Recovered/Resolved]
  - Lymphocytosis [Recovered/Resolved]
  - Mononucleosis syndrome [Recovered/Resolved]
  - Leukocytosis [Recovered/Resolved]
  - Infectious mononucleosis [Recovering/Resolving]
